FAERS Safety Report 10214442 (Version 1)
Quarter: 2014Q2

REPORT INFORMATION
  Report Type: Spontaneous
  Country: US (occurrence: US)
  Receive Date: 20140603
  Receipt Date: 20140603
  Transmission Date: 20141212
  Serious: No
  Sender: FDA-Public Use
  Company Number: US-009507513-1405USA010599

PATIENT
  Age: 22 Year
  Sex: Female
  Weight: 68.27 kg

DRUGS (3)
  1. CLARITIN [Suspect]
     Indication: HYPERSENSITIVITY
     Dosage: 10 MG, BID
     Route: 048
  2. CLARITIN [Suspect]
     Dosage: 10 MG, QD
     Route: 048
  3. HORMONAL CONTRACEPTIVES (UNSPECIFIED) [Concomitant]
     Indication: PRODUCT USED FOR UNKNOWN INDICATION
     Dosage: UNK, UNKNOWN

REACTIONS (1)
  - Accidental overdose [Unknown]
